FAERS Safety Report 16180906 (Version 5)
Quarter: 2019Q2

REPORT INFORMATION
  Report Type: Report from Study
  Country: US (occurrence: US)
  Receive Date: 20190410
  Receipt Date: 20190626
  Transmission Date: 20190711
  Serious: Yes (Hospitalization)
  Sender: FDA-Public Use
  Company Number: US-EXELIXIS-CABO-19020068

PATIENT
  Sex: Female

DRUGS (1)
  1. CABOMETYX [Suspect]
     Active Substance: CABOZANTINIB S-MALATE
     Indication: RENAL CANCER
     Dosage: 40 MG, QD (7 AM WITHOUT FOOD 2 H BEFORE AND 1 H AFTER)
     Route: 048
     Dates: start: 20181217

REACTIONS (7)
  - Orthostatic hypotension [Recovered/Resolved]
  - Abdominal discomfort [Recovered/Resolved]
  - Dehydration [Unknown]
  - Constipation [Recovered/Resolved]
  - Pain in extremity [Not Recovered/Not Resolved]
  - Decreased appetite [Not Recovered/Not Resolved]
  - Hip fracture [Recovering/Resolving]
